FAERS Safety Report 4625541-3 (Version None)
Quarter: 2005Q2

REPORT INFORMATION
  Report Type: 
  Country: None (occurrence: None)
  Receive Date: 20050401
  Receipt Date: 20020715
  Transmission Date: 20051028
  Serious: Yes (Hospitalization, Other)
  Sender: FDA-Public Use
  Company Number: US-MERCK-0207USA01396

PATIENT
  Age: 57 Year
  Sex: Male
  Weight: 95 kg

DRUGS (11)
  1. VIOXX [Suspect]
     Indication: ARTHRITIS
     Route: 048
     Dates: start: 20010601, end: 20010625
  2. VIOXX [Suspect]
     Route: 048
     Dates: start: 20000207
  3. CELEBREX [Concomitant]
     Indication: ARTHRITIS
     Route: 065
     Dates: start: 20000101, end: 20030101
  4. CELEBREX [Concomitant]
     Route: 065
     Dates: start: 20030101
  5. CELEBREX [Concomitant]
     Indication: OSTEITIS DEFORMANS
     Route: 065
     Dates: start: 20000101, end: 20030101
  6. CELEBREX [Concomitant]
     Route: 065
     Dates: start: 20030101
  7. FOSAMAX [Concomitant]
     Indication: OSTEITIS DEFORMANS
     Route: 048
  8. DURAGESIC-100 [Concomitant]
     Indication: BACK PAIN
     Route: 065
  9. DIOVAN [Concomitant]
     Indication: HYPERTENSION
     Route: 065
     Dates: start: 20001201, end: 20001201
  10. DIOVAN [Concomitant]
     Route: 065
     Dates: start: 20001201
  11. VERAPAMIL MSD LP [Concomitant]
     Indication: HYPERTENSION
     Route: 048
     Dates: start: 20010101

REACTIONS (11)
  - ANXIETY [None]
  - CORONARY ARTERY DISEASE [None]
  - DERMATITIS [None]
  - HYPERTENSION [None]
  - INJURY [None]
  - MYOCARDIAL INFARCTION [None]
  - MYOCARDIAL ISCHAEMIA [None]
  - NERVOUSNESS [None]
  - SINUS DISORDER [None]
  - STREPTOCOCCAL INFECTION [None]
  - URINARY TRACT INFECTION ENTEROCOCCAL [None]
